FAERS Safety Report 4776300-2 (Version None)
Quarter: 2005Q3

REPORT INFORMATION
  Report Type: 
  Country: None (occurrence: None)
  Receive Date: 20050921
  Receipt Date: 20050909
  Transmission Date: 20060218
  Serious: Yes (Other)
  Sender: FDA-Public Use
  Company Number: THQ2005A00814

PATIENT
  Age: 50 Year
  Sex: Male

DRUGS (1)
  1. ACTOS [Suspect]
     Indication: DIABETES MELLITUS
     Dosage: 30 MG (15 MG, 2 IN 1 D), PER ORAL
     Route: 048
     Dates: end: 20050101

REACTIONS (5)
  - ACTIVITIES OF DAILY LIVING IMPAIRED [None]
  - CONDITION AGGRAVATED [None]
  - LOSS OF CONSCIOUSNESS [None]
  - NAUSEA [None]
  - VERTIGO [None]
